FAERS Safety Report 24778066 (Version 1)
Quarter: 2024Q4

REPORT INFORMATION
  Report Type: Report from Study
  Country: US (occurrence: CA)
  Receive Date: 20241226
  Receipt Date: 20241226
  Transmission Date: 20250114
  Serious: Yes (Other)
  Sender: ALEXION PHARMACEUTICALS
  Company Number: US-ASTRAZENECA-202412USA017823US

PATIENT

DRUGS (28)
  1. BENRALIZUMAB [Suspect]
     Active Substance: BENRALIZUMAB
     Indication: Asthma
     Dosage: 30 MILLIGRAM, Q8W
  2. BENRALIZUMAB [Suspect]
     Active Substance: BENRALIZUMAB
     Dosage: 30 MILLIGRAM, Q8W
     Route: 058
  3. BENRALIZUMAB [Suspect]
     Active Substance: BENRALIZUMAB
     Dosage: 30 MILLIGRAM, Q8W
  4. BENRALIZUMAB [Suspect]
     Active Substance: BENRALIZUMAB
     Dosage: 30 MILLIGRAM, Q8W
     Route: 058
  5. OMEPRAZOLE [Concomitant]
     Active Substance: OMEPRAZOLE
     Route: 065
  6. OMEPRAZOLE [Concomitant]
     Active Substance: OMEPRAZOLE
     Route: 065
  7. SYMBICORT AEROSPHERE [Concomitant]
     Active Substance: BUDESONIDE\FORMOTEROL FUMARATE
  8. SYMBICORT AEROSPHERE [Concomitant]
     Active Substance: BUDESONIDE\FORMOTEROL FUMARATE
  9. ALBUTEROL [Concomitant]
     Active Substance: ALBUTEROL
  10. ACYCLOVIR [Concomitant]
     Active Substance: ACYCLOVIR
  11. ALLOPURINOL [Concomitant]
     Active Substance: ALLOPURINOL
  12. AMITRIPTYLINE [Concomitant]
     Active Substance: AMITRIPTYLINE
  13. BENZONATATE [Concomitant]
     Active Substance: BENZONATATE
  14. BUSPIRONE [Concomitant]
     Active Substance: BUSPIRONE HYDROCHLORIDE
  15. CANNABIDIOL [Concomitant]
     Active Substance: CANNABIDIOL
  16. MOUNJARO [Concomitant]
     Active Substance: TIRZEPATIDE
  17. IPRATROPIUM [Concomitant]
     Active Substance: IPRATROPIUM
  18. LOSARTAN [Concomitant]
     Active Substance: LOSARTAN
  19. LYRICA [Concomitant]
     Active Substance: PREGABALIN
  20. MELOXICAM [Concomitant]
     Active Substance: MELOXICAM
  21. METOPROLOL [Concomitant]
     Active Substance: METOPROLOL
  22. OZEMPIC [Concomitant]
     Active Substance: SEMAGLUTIDE
  23. QUETIAPINE [Concomitant]
     Active Substance: QUETIAPINE
  24. RIZATRIPTAN [Concomitant]
     Active Substance: RIZATRIPTAN
  25. SIMVASTATIN [Concomitant]
     Active Substance: SIMVASTATIN
  26. TRAVOPROST [Concomitant]
     Active Substance: TRAVOPROST
  27. VITAMIN D3 [Concomitant]
     Active Substance: CHOLECALCIFEROL
  28. Triamcinolon [Concomitant]

REACTIONS (4)
  - Loss of consciousness [Recovered/Resolved]
  - Malaise [Recovered/Resolved]
  - Asthenia [Recovered/Resolved]
  - Headache [Recovered/Resolved]
